FAERS Safety Report 21932082 (Version 1)
Quarter: 2023Q1

REPORT INFORMATION
  Report Type: Spontaneous
  Country: US (occurrence: US)
  Receive Date: 20230131
  Receipt Date: 20230131
  Transmission Date: 20230418
  Serious: Yes (Hospitalization, Other)
  Sender: FDA-Public Use
  Company Number: US-SA-SAC20230130000352

PATIENT
  Sex: Female

DRUGS (22)
  1. AUBAGIO [Suspect]
     Active Substance: TERIFLUNOMIDE
     Indication: Multiple sclerosis
     Dosage: 14 MG, QD
     Route: 048
     Dates: start: 20130423
  2. CARAFATE [Concomitant]
     Active Substance: SUCRALFATE
     Dosage: UNK
  3. LIPITOR [Concomitant]
     Active Substance: ATORVASTATIN CALCIUM
  4. MECLIZINE HYDROCHLORIDE [Concomitant]
     Active Substance: MECLIZINE HYDROCHLORIDE
  5. TOPAMAX [Concomitant]
     Active Substance: TOPIRAMATE
  6. VITAMIN D NOS [Concomitant]
     Active Substance: VITAMIN D NOS
  7. CYMBALTA [Concomitant]
     Active Substance: DULOXETINE HYDROCHLORIDE
  8. DILTIAZEM [Concomitant]
     Active Substance: DILTIAZEM
  9. GABAPENTIN [Concomitant]
     Active Substance: GABAPENTIN
  10. HYDROCODONE [Concomitant]
     Active Substance: HYDROCODONE
  11. IMITREX [Concomitant]
     Active Substance: SUMATRIPTAN SUCCINATE
  12. LOPRESSOR [Concomitant]
     Active Substance: METOPROLOL TARTRATE
  13. ESTROGENS, CONJUGATED [Concomitant]
     Active Substance: ESTROGENS, CONJUGATED
  14. METHYLPREDNISOLONE [Concomitant]
     Active Substance: METHYLPREDNISOLONE
  15. MONTELUKAST SODIUM [Concomitant]
     Active Substance: MONTELUKAST SODIUM
  16. NUEDEXTA [Concomitant]
     Active Substance: DEXTROMETHORPHAN HYDROBROMIDE\QUINIDINE SULFATE
  17. ONDANSETRON HCL [Concomitant]
     Active Substance: ONDANSETRON HYDROCHLORIDE
  18. SEROQUEL [Concomitant]
     Active Substance: QUETIAPINE FUMARATE
  19. TOPIRAMATE [Concomitant]
     Active Substance: TOPIRAMATE
  20. IBUPROFEN [Concomitant]
     Active Substance: IBUPROFEN
  21. WELLBUTRIN [Concomitant]
     Active Substance: BUPROPION HYDROCHLORIDE
  22. FERROUS SULFATE [Concomitant]
     Active Substance: FERROUS SULFATE

REACTIONS (4)
  - Bipolar I disorder [Unknown]
  - Vertigo [Unknown]
  - Dizziness [Unknown]
  - Headache [Unknown]
